FAERS Safety Report 7456118-2 (Version None)
Quarter: 2011Q2

REPORT INFORMATION
  Report Type: 
  Country: None (occurrence: None)
  Receive Date: 20110503
  Receipt Date: 20110202
  Transmission Date: 20111010
  Serious: Yes (Other)
  Sender: FDA-Public Use
  Company Number: PHHY2009TZ43104

PATIENT
  Age: 20 Year
  Sex: Female
  Weight: 68 kg

DRUGS (4)
  1. ARTEMETHER,BENFLUMETOL [Suspect]
     Indication: MALARIA
     Dosage: 4 DF (FOUR TABLETS)
     Route: 048
     Dates: start: 20090615, end: 20090617
  2. ACETAMINOPHEN [Concomitant]
     Indication: PYREXIA
     Dosage: 2 DF, (TWO TABLETS)
     Route: 048
     Dates: start: 20090615, end: 20090617
  3. FERROUS SULFATE TAB [Concomitant]
     Indication: ANAEMIA
     Dosage: 1 DF, (1 TABLET DAILY)
     Route: 048
     Dates: start: 20090615, end: 20090629
  4. DEPO-PROVERA [Concomitant]

REACTIONS (2)
  - DRUG EXPOSURE DURING PREGNANCY [None]
  - PREMATURE LABOUR [None]
